FAERS Safety Report 21351847 (Version 3)
Quarter: 2022Q4

REPORT INFORMATION
  Report Type: Spontaneous
  Country: US (occurrence: US)
  Receive Date: 20220920
  Receipt Date: 20221128
  Transmission Date: 20230113
  Serious: Yes (Other)
  Sender: FDA-Public Use
  Company Number: US-BEH-2022149656

PATIENT
  Age: 26 Year
  Sex: Female
  Weight: 58.957 kg

DRUGS (6)
  1. HAEGARDA [Suspect]
     Active Substance: HUMAN C1-ESTERASE INHIBITOR
     Indication: Hereditary angioedema
     Dosage: 3600 INTERNATIONAL UNIT
     Route: 058
     Dates: start: 20220823
  2. HAEGARDA [Suspect]
     Active Substance: HUMAN C1-ESTERASE INHIBITOR
     Indication: Prophylaxis
     Dosage: 3600 INTERNATIONAL UNIT
     Route: 058
     Dates: start: 20220824
  3. HAEGARDA [Suspect]
     Active Substance: HUMAN C1-ESTERASE INHIBITOR
     Indication: Hereditary angioedema
     Dosage: 3600 INTERNATIONAL UNIT, BIW
     Route: 058
     Dates: start: 20220824
  4. HAEGARDA [Suspect]
     Active Substance: HUMAN C1-ESTERASE INHIBITOR
     Dosage: UNK
     Route: 058
     Dates: start: 20221112
  5. ICATIBANT [Concomitant]
     Active Substance: ICATIBANT ACETATE
  6. FIRAZYR [Concomitant]
     Active Substance: ICATIBANT ACETATE
     Indication: Hereditary angioedema
     Dosage: UNK

REACTIONS (6)
  - Hereditary angioedema [Recovered/Resolved]
  - Injection site bruising [Unknown]
  - Injection site pain [Unknown]
  - Dehydration [Unknown]
  - Fatigue [Unknown]
  - Hereditary angioedema [Recovered/Resolved]

NARRATIVE: CASE EVENT DATE: 20220902
